FAERS Safety Report 16121755 (Version 1)
Quarter: 2019Q2

REPORT INFORMATION
  Report Type: Spontaneous
  Country: US (occurrence: US)
  Receive Date: 20190326
  Receipt Date: 20190326
  Transmission Date: 20190711
  Serious: Yes (Hospitalization, Other)
  Sender: FDA-Public Use
  Company Number: None

PATIENT
  Age: 37 Year
  Sex: Female
  Weight: 48.6 kg

DRUGS (1)
  1. MISOPROSTOL TABLET [Suspect]
     Active Substance: MISOPROSTOL
     Indication: UTERINE DILATION AND CURETTAGE
     Dosage: ?          QUANTITY:2 TABLET(S);?
     Route: 048
     Dates: start: 20181017, end: 20181017

REACTIONS (11)
  - Anxiety [None]
  - Pelvic pain [None]
  - Urinary tract infection [None]
  - Muscle spasms [None]
  - Escherichia infection [None]
  - Pain [None]
  - Tubulointerstitial nephritis [None]
  - Pollakiuria [None]
  - Mental impairment [None]
  - Nerve injury [None]
  - Enterococcal infection [None]

NARRATIVE: CASE EVENT DATE: 20181017
